FAERS Safety Report 11173784 (Version 1)
Quarter: 2015Q2

REPORT INFORMATION
  Report Type: Spontaneous
  Country: US (occurrence: None)
  Receive Date: 20150605
  Receipt Date: 20150605
  Transmission Date: 20150821
  Serious: Yes (Hospitalization)
  Sender: FDA-Public Use
  Company Number: 2015JUB00155

PATIENT
  Sex: Female

DRUGS (4)
  1. HALOPERIDOL DECANOATE. [Suspect]
     Active Substance: HALOPERIDOL DECANOATE
     Indication: SCHIZOPHRENIA
  2. DONEPEZIL [Suspect]
     Active Substance: DONEPEZIL
     Indication: DEMENTIA
  3. FLUVOXAMINE [Concomitant]
     Active Substance: FLUVOXAMINE
  4. BENZTROPINE [Suspect]
     Active Substance: BENZTROPINE
     Indication: EXTRAPYRAMIDAL DISORDER

REACTIONS (4)
  - Drug interaction [None]
  - Neuroleptic malignant syndrome [None]
  - Drug level increased [None]
  - Rhabdomyolysis [None]
